FAERS Safety Report 8996998 (Version 1)
Quarter: 2013Q1

REPORT INFORMATION
  Report Type: Spontaneous
  Country: US (occurrence: None)
  Receive Date: 20130102
  Receipt Date: 20130102
  Transmission Date: 20140127
  Serious: Yes (Hospitalization)
  Sender: FDA-Public Use
  Company Number: None

PATIENT
  Age: 60 Year
  Sex: Female
  Weight: 109.32 kg

DRUGS (1)
  1. ESCITALOPRAM OXALATE [Suspect]
     Dosage: 10 MG 1QD PO
     Route: 048
     Dates: start: 20120322, end: 20120327

REACTIONS (6)
  - Confusional state [None]
  - Vision blurred [None]
  - Nausea [None]
  - Anxiety [None]
  - Heart rate abnormal [None]
  - Blood pressure diastolic increased [None]
